FAERS Safety Report 12136296 (Version 1)
Quarter: 2016Q1

REPORT INFORMATION
  Report Type: Spontaneous
  Country: US (occurrence: None)
  Receive Date: 20160301
  Receipt Date: 20160301
  Transmission Date: 20160526
  Serious: Yes (Disabling, Other)
  Sender: FDA-Public Use
  Company Number: None

PATIENT
  Age: 66 Year
  Sex: Male
  Weight: 70.31 kg

DRUGS (6)
  1. SOVALDI [Suspect]
     Active Substance: SOFOSBUVIR
     Indication: HEPATITIS C
     Dosage: 1 PILL ONCE DAILY  TAKEN BY MOUTH
     Route: 048
     Dates: start: 20140519, end: 20141105
  2. METHADONE [Concomitant]
     Active Substance: METHADONE HYDROCHLORIDE
  3. HYDROXYZINE [Concomitant]
     Active Substance: HYDROXYZINE\HYDROXYZINE HYDROCHLORIDE
  4. LORAZEPAM. [Concomitant]
     Active Substance: LORAZEPAM
  5. RIBAVIRIN 600/400 MG KADMON PHARMACEUTICALS [Suspect]
     Active Substance: RIBAVIRIN
     Indication: HEPATITIS C
     Dosage: 1 600 MG, 1 400 MG PILLS  TWICE DAILY  TAKEN BY MOUTH
     Route: 048
     Dates: start: 20140519, end: 20141105
  6. TYLENOL [Concomitant]
     Active Substance: ACETAMINOPHEN

REACTIONS (9)
  - Burning sensation [None]
  - Panic attack [None]
  - Memory impairment [None]
  - Depression [None]
  - Mitochondrial toxicity [None]
  - Feeling abnormal [None]
  - Skin burning sensation [None]
  - Pneumonia [None]
  - Rash [None]

NARRATIVE: CASE EVENT DATE: 20140519
